FAERS Safety Report 23282370 (Version 1)
Quarter: 2023Q4

REPORT INFORMATION
  Report Type: Spontaneous
  Country: JP (occurrence: JP)
  Receive Date: 20231211
  Receipt Date: 20231211
  Transmission Date: 20240110
  Serious: Yes (Hospitalization, Other)
  Sender: FDA-Public Use
  Company Number: JP-AstraZeneca-CH-00523797A

PATIENT
  Age: 68 Year
  Sex: Female
  Weight: 34 kg

DRUGS (2)
  1. ULTOMIRIS [Suspect]
     Active Substance: RAVULIZUMAB-CWVZ
     Indication: Myasthenia gravis
     Dosage: 1200 MILLIGRAM
     Route: 042
     Dates: start: 20230922
  2. ULTOMIRIS [Suspect]
     Active Substance: RAVULIZUMAB-CWVZ
     Dosage: 2700 MILLIGRAM, Q56
     Route: 041

REACTIONS (2)
  - Colitis ischaemic [Recovering/Resolving]
  - Off label use [Unknown]

NARRATIVE: CASE EVENT DATE: 20230922
